FAERS Safety Report 4987961-7 (Version None)
Quarter: 2006Q2

REPORT INFORMATION
  Report Type: 
  Country: None (occurrence: None)
  Receive Date: 20060424
  Receipt Date: 20060406
  Transmission Date: 20061013
  Serious: Yes (Death)
  Sender: FDA-Public Use
  Company Number: BR-2006-007971

PATIENT
  Age: 32 Year
  Sex: Female

DRUGS (1)
  1. BETAFERON [Suspect]
     Indication: MULTIPLE SCLEROSIS
     Dosage: MIU, SUBCUTANEOUS
     Route: 058
     Dates: start: 20000101, end: 20021001

REACTIONS (3)
  - CARDIO-RESPIRATORY ARREST [None]
  - INJECTION SITE BRUISING [None]
  - WOUND [None]
